FAERS Safety Report 20533840 (Version 2)
Quarter: 2022Q2

REPORT INFORMATION
  Report Type: Spontaneous
  Country: IE (occurrence: IE)
  Receive Date: 20220301
  Receipt Date: 20220607
  Transmission Date: 20220721
  Serious: Yes (Hospitalization)
  Sender: FDA-Public Use
  Company Number: IE-SA-2019SA330584

PATIENT
  Age: 1 Year
  Sex: Female

DRUGS (7)
  1. LARONIDASE [Suspect]
     Active Substance: LARONIDASE
     Indication: Mucopolysaccharidosis I
     Dosage: UNK, QW
     Route: 065
  2. SYNAGIS [Concomitant]
     Active Substance: PALIVIZUMAB
     Indication: Bone marrow transplant
     Dosage: 15 MG/KG (AFTER 28 DAYS)
     Route: 030
     Dates: start: 20181009
  3. SYNAGIS [Concomitant]
     Active Substance: PALIVIZUMAB
     Dosage: 15 MG/KG (AFTER 28 DAYS)
     Route: 030
     Dates: start: 20181106
  4. SYNAGIS [Concomitant]
     Active Substance: PALIVIZUMAB
     Dosage: 15 MG/KG (AFTER 28 DAYS)
     Route: 030
     Dates: start: 20191028
  5. VITAMIN D [Concomitant]
     Active Substance: VITAMIN D NOS
     Indication: Product used for unknown indication
     Dosage: .3 MILLIGRAM, QD
     Route: 065
  6. CALVAPEN [Concomitant]
     Indication: Product used for unknown indication
     Dosage: 0.5 MILLILITER, BID
     Route: 065
  7. ZOVIRAX [Concomitant]
     Active Substance: ACYCLOVIR
     Indication: Product used for unknown indication
     Dosage: 5 MILLILITER, QD
     Route: 065

REACTIONS (3)
  - Lower respiratory tract infection [Unknown]
  - Influenza like illness [Unknown]
  - Pyrexia [Unknown]

NARRATIVE: CASE EVENT DATE: 20191101
